FAERS Safety Report 9709435 (Version 1)
Quarter: 2013Q4

REPORT INFORMATION
  Report Type: Report from Study
  Country: US (occurrence: US)
  Receive Date: 20131126
  Receipt Date: 20131126
  Transmission Date: 20140711
  Serious: Yes (Hospitalization, Other)
  Sender: FDA-Public Use
  Company Number: US-ROCHE-1305328

PATIENT
  Sex: Male

DRUGS (7)
  1. AVASTIN [Suspect]
     Indication: BRAIN NEOPLASM MALIGNANT
     Route: 065
     Dates: start: 20130411
  2. AVASTIN [Suspect]
     Indication: BRAIN NEOPLASM
  3. DECADRON [Suspect]
     Indication: PRODUCT USED FOR UNKNOWN INDICATION
     Route: 065
  4. KEPPRA [Suspect]
     Indication: PRODUCT USED FOR UNKNOWN INDICATION
     Route: 065
  5. CELEXA (UNITED STATES) [Concomitant]
     Route: 065
  6. FAMOTIDINE [Concomitant]
     Route: 065
  7. TEMODAR [Concomitant]
     Route: 065

REACTIONS (8)
  - Hyporesponsive to stimuli [Unknown]
  - Convulsion [Unknown]
  - Fall [Unknown]
  - Altered state of consciousness [Unknown]
  - Nausea [Unknown]
  - Lethargy [Unknown]
  - Balance disorder [Unknown]
  - Vomiting [Unknown]
